FAERS Safety Report 8521239 (Version 2)
Quarter: 2012Q4

REPORT INFORMATION
  Report Type: 
  Country: JP (occurrence: JP)
  Receive Date: 20120419
  Receipt Date: 20121031
  Transmission Date: 20130627
  Serious: Yes (Other)
  Sender: FDA-Public Use
  Company Number: PHHY2012JP032656

PATIENT
  Age: 61 Year
  Sex: Female

DRUGS (1)
  1. ZOMETA [Suspect]
     Indication: METASTASES TO BONE
     Dosage: 4 mg, UNK
     Route: 041
     Dates: start: 2008

REACTIONS (2)
  - Osteosclerosis [Not Recovered/Not Resolved]
  - Femur fracture [Recovering/Resolving]
